FAERS Safety Report 16237575 (Version 1)
Quarter: 2019Q2

REPORT INFORMATION
  Report Type: Spontaneous
  Country: US (occurrence: US)
  Receive Date: 20190424
  Receipt Date: 20190424
  Transmission Date: 20190711
  Serious: Yes (Other)
  Sender: FDA-Public Use
  Company Number: None

PATIENT
  Age: 49 Year
  Sex: Male
  Weight: 136.2 kg

DRUGS (4)
  1. OXALIPLATIN. [Suspect]
     Active Substance: OXALIPLATIN
     Indication: RECTAL CANCER
     Dosage: ?          OTHER FREQUENCY:ONE TIME INFUSION;?
     Route: 041
     Dates: start: 20190423, end: 20190423
  2. DIPHENHYDRAMINE. [Concomitant]
     Active Substance: DIPHENHYDRAMINE
     Dates: start: 20190423, end: 20190423
  3. HYDROCORTISONE 100 MG IVP [Concomitant]
     Dates: start: 20190423, end: 20190423
  4. MEDROL DOSE-PACK [Concomitant]
     Dates: start: 20190423, end: 20190423

REACTIONS (6)
  - Nasopharyngitis [None]
  - Hypoaesthesia [None]
  - Throat irritation [None]
  - Headache [None]
  - Fatigue [None]
  - Neuropathy peripheral [None]

NARRATIVE: CASE EVENT DATE: 20190423
